FAERS Safety Report 7364382-3 (Version None)
Quarter: 2011Q1

REPORT INFORMATION
  Report Type: 
  Country: None (occurrence: None)
  Receive Date: 20110321
  Receipt Date: 20110311
  Transmission Date: 20110831
  Serious: Yes (Death)
  Sender: FDA-Public Use
  Company Number: US-JNJFOC-20110306892

PATIENT
  Sex: Female
  Weight: 77.11 kg

DRUGS (1)
  1. FENTANYL-100 [Suspect]
     Indication: UPPER LIMB FRACTURE
     Dosage: NDC#0781-7112-55
     Route: 062

REACTIONS (2)
  - WEIGHT DECREASED [None]
  - CARDIAC DISORDER [None]
